FAERS Safety Report 15486772 (Version 2)
Quarter: 2018Q4

REPORT INFORMATION
  Report Type: Spontaneous
  Country: US (occurrence: US)
  Receive Date: 20181011
  Receipt Date: 20181214
  Transmission Date: 20190205
  Serious: No
  Sender: FDA-Public Use
  Company Number: US-B.I. PHARMACEUTICALS,INC./RIDGEFIELD-2018-BI-050000

PATIENT
  Age: 65 Year
  Sex: Female

DRUGS (9)
  1. JARDIANCE [Suspect]
     Active Substance: EMPAGLIFLOZIN
     Indication: TYPE 2 DIABETES MELLITUS
     Dosage: ONE TABLET DAILY;  FORM STRENGTH: 25 MG; FORMULATION: TABLET?  YES ?ACTION  TAKEN:  DRUG WITHDRAWN
     Route: 048
     Dates: start: 20180508, end: 20181003
  2. ASPIRIN. [Concomitant]
     Active Substance: ASPIRIN
     Indication: PRODUCT USED FOR UNKNOWN INDICATION
     Dosage: 1 TABLET ORALLY 1 TIME A DAY
     Route: 048
     Dates: start: 20180308
  3. JARDIANCE [Suspect]
     Active Substance: EMPAGLIFLOZIN
     Route: 048
     Dates: start: 20181004
  4. JANUMET [Concomitant]
     Active Substance: METFORMIN HYDROCHLORIDE\SITAGLIPTIN PHOSPHATE
     Indication: TYPE 2 DIABETES MELLITUS
     Dosage: FORM STRENGTH: 50/1000MG; DAILY DOSE-100 MG/ 2000 MG, FORM: TABLET
     Route: 048
     Dates: start: 20180917
  5. ATORVASTATIN CALCIUM. [Concomitant]
     Active Substance: ATORVASTATIN CALCIUM
     Indication: PRODUCT USED FOR UNKNOWN INDICATION
     Dosage: 1 TAB ORALLY 1 TIME A DAY FOR 90 DAYS
     Route: 048
     Dates: start: 20180508
  6. MONTELUKAST SODIUM. [Concomitant]
     Active Substance: MONTELUKAST SODIUM
     Indication: HYPERSENSITIVITY
     Dosage: 1 TAB ORALLY 1 TIME A DAY FOR ALLERGIES (TAKE WITH LORATIDINE)
     Route: 048
     Dates: start: 20180508
  7. FLUTICASONE PROPIONATE. [Concomitant]
     Active Substance: FLUTICASONE PROPIONATE
     Indication: PRODUCT USED FOR UNKNOWN INDICATION
     Dosage: 2 SPRAYS EACH NOSTRILS ONCE DAILY  50MCG\ACT?NASAL SUSPENSION?48GRAMS
     Route: 065
     Dates: start: 20180805
  8. LORATADINE. [Concomitant]
     Active Substance: LORATADINE
     Indication: HYPERSENSITIVITY
     Dosage: 1 TABLET ORALLY 1 TIME A DAY FOR ALLERGIES (TAKE WITH MONTELUKAST
     Route: 048
     Dates: start: 20180508
  9. LOSARTAN POTASSIUM. [Concomitant]
     Active Substance: LOSARTAN POTASSIUM
     Indication: HYPERTENSION
     Dosage: 1 TAB ORALLY 1 TIME A DAY?DURATION 90
     Route: 048
     Dates: start: 20180308

REACTIONS (2)
  - Abdominal pain upper [Not Recovered/Not Resolved]
  - Hypertension [Recovered/Resolved]

NARRATIVE: CASE EVENT DATE: 201808
